FAERS Safety Report 9651947 (Version 2)
Quarter: 2015Q2

REPORT INFORMATION
  Report Type: Spontaneous
  Country: GB (occurrence: GB)
  Receive Date: 20131029
  Receipt Date: 20150512
  Transmission Date: 20150821
  Serious: Yes (Hospitalization)
  Sender: FDA-Public Use
  Company Number: PHHY2013GB118214

PATIENT
  Age: 36 Year
  Sex: Male

DRUGS (4)
  1. METHADONE [Suspect]
     Active Substance: METHADONE HYDROCHLORIDE
     Indication: DRUG DEPENDENCE
     Dosage: 90 MG, QD
     Route: 065
     Dates: start: 1997
  2. QUETIAPINE [Interacting]
     Active Substance: QUETIAPINE
     Indication: DEPRESSION
     Dosage: 50 MG, QHS
     Route: 065
     Dates: start: 200905
  3. VENLAFAXINE [Interacting]
     Active Substance: VENLAFAXINE HYDROCHLORIDE
     Indication: DEPRESSION
     Dosage: 375 MG, QD
     Route: 065
     Dates: start: 200902
  4. LEVOTHYROXINE [Concomitant]
     Active Substance: LEVOTHYROXINE
     Indication: DEPRESSION
     Dosage: 50 UG, QD
     Route: 065
     Dates: start: 200812

REACTIONS (23)
  - Disorientation [Recovered/Resolved]
  - Grimacing [Recovered/Resolved]
  - Mood altered [Recovered/Resolved]
  - Aggression [Recovered/Resolved]
  - Nystagmus [Recovered/Resolved]
  - Paranoia [Recovered/Resolved]
  - Headache [Recovered/Resolved]
  - Muscle rigidity [Recovered/Resolved]
  - Pyrexia [Recovered/Resolved]
  - Hallucinations, mixed [Recovered/Resolved]
  - Confusional state [Recovered/Resolved]
  - Agitation [Recovered/Resolved]
  - Tachycardia [Recovered/Resolved]
  - Blood pressure fluctuation [Recovered/Resolved]
  - Incoherent [Recovered/Resolved]
  - Neuroleptic malignant syndrome [Recovered/Resolved]
  - Dyskinesia [Recovered/Resolved]
  - Leukocytosis [Recovered/Resolved]
  - Pupillary disorder [Recovered/Resolved]
  - Chorea [Recovered/Resolved]
  - Hyperhidrosis [Recovered/Resolved]
  - Choreoathetosis [Recovered/Resolved]
  - Heart rate increased [Recovered/Resolved]

NARRATIVE: CASE EVENT DATE: 2009
